FAERS Safety Report 6461958-2 (Version None)
Quarter: 2009Q4

REPORT INFORMATION
  Report Type: 
  Country: None (occurrence: None)
  Receive Date: 20091130
  Receipt Date: 20091124
  Transmission Date: 20100525
  Serious: Yes (Hospitalization, Other)
  Sender: FDA-Public Use
  Company Number: FR-BRISTOL-MYERS SQUIBB COMPANY-14872618

PATIENT
  Age: 85 Year
  Sex: Female

DRUGS (1)
  1. ORENCIA [Suspect]
     Dosage: FIRST INFUSION

REACTIONS (2)
  - HAEMARTHROSIS [None]
  - PHLEBITIS [None]
